FAERS Safety Report 24308370 (Version 3)
Quarter: 2025Q1

REPORT INFORMATION
  Report Type: Spontaneous
  Country: US (occurrence: US)
  Receive Date: 20240911
  Receipt Date: 20250304
  Transmission Date: 20250409
  Serious: Yes (Other)
  Sender: PFIZER
  Company Number: US-PFIZER INC-PV202400118719

PATIENT
  Age: 66 Year
  Sex: Female

DRUGS (1)
  1. IBRANCE [Suspect]
     Active Substance: PALBOCICLIB
     Indication: Breast cancer female
     Route: 048
     Dates: start: 20240829

REACTIONS (12)
  - Pneumonia [Unknown]
  - Visual impairment [Unknown]
  - Fatigue [Unknown]
  - Nausea [Unknown]
  - Malaise [Unknown]
  - Sleep disorder [Unknown]
  - Depression [Unknown]
  - Vision blurred [Unknown]
  - Anxiety [Unknown]
  - Disorientation [Unknown]
  - Urinary tract infection [Unknown]
  - Disease recurrence [Unknown]

NARRATIVE: CASE EVENT DATE: 20240101
